FAERS Safety Report 7039379-3 (Version None)
Quarter: 2010Q4

REPORT INFORMATION
  Report Type: 
  Country: None (occurrence: None)
  Receive Date: 20101012
  Receipt Date: 20101007
  Transmission Date: 20110411
  Serious: Yes (Hospitalization)
  Sender: FDA-Public Use
  Company Number: FR-BRISTOL-MYERS SQUIBB COMPANY-15326564

PATIENT
  Age: 49 Year
  Sex: Female

DRUGS (7)
  1. REYATAZ [Suspect]
     Indication: HIV INFECTION
     Dates: start: 20050928, end: 20100917
  2. NORVIR [Suspect]
     Indication: HIV INFECTION
     Dates: start: 20050928, end: 20100917
  3. KIVEXA [Suspect]
     Indication: ANTIRETROVIRAL THERAPY
     Dates: start: 20050101
  4. AROMASIN [Concomitant]
  5. ANAFRANIL [Concomitant]
  6. MEPRONIZINE [Concomitant]
  7. VALIUM [Concomitant]

REACTIONS (1)
  - RENAL COLIC [None]
